FAERS Safety Report 9200072 (Version 1)
Quarter: 2013Q1

REPORT INFORMATION
  Report Type: Spontaneous
  Country: IN (occurrence: IN)
  Receive Date: 20130329
  Receipt Date: 20130329
  Transmission Date: 20140127
  Serious: Yes (Other)
  Sender: FDA-Public Use
  Company Number: IN-PFIZER INC-2013099210

PATIENT
  Age: 52 Year
  Sex: Male

DRUGS (3)
  1. VENLAFAXINE HYDROCHLORIDE [Suspect]
     Indication: MAJOR DEPRESSION
     Dosage: 225 MG/ DAY
  2. CITALOPRAM [Suspect]
     Indication: MAJOR DEPRESSION
     Dosage: 20 MG/ DAY
  3. BUPROPION [Interacting]
     Indication: MAJOR DEPRESSION
     Dosage: UNK

REACTIONS (7)
  - Drug interaction [Unknown]
  - Anxiety [Unknown]
  - Agitation [Unknown]
  - Restlessness [Unknown]
  - Suicidal ideation [Unknown]
  - Blood pressure increased [Unknown]
  - Drug ineffective [Unknown]
